FAERS Safety Report 8085413-1 (Version None)
Quarter: 2012Q1

REPORT INFORMATION
  Report Type: 
  Country: None (occurrence: None)
  Receive Date: 20120128
  Receipt Date: 20110607
  Transmission Date: 20120608
  Serious: No
  Sender: FDA-Public Use
  Company Number: PR-ABBOTT-11P-131-0730795-00

PATIENT
  Sex: Female

DRUGS (3)
  1. RELAFEN [Concomitant]
     Indication: BACK PAIN
     Route: 048
  2. HUMIRA [Suspect]
     Indication: PRODUCT USED FOR UNKNOWN INDICATION
  3. NAPROXEN [Concomitant]
     Indication: BACK PAIN
     Route: 048

REACTIONS (4)
  - INJURY ASSOCIATED WITH DEVICE [None]
  - WRONG TECHNIQUE IN DRUG USAGE PROCESS [None]
  - WRONG DRUG ADMINISTERED [None]
  - HEADACHE [None]
